FAERS Safety Report 8825815 (Version 1)
Quarter: 2012Q4

REPORT INFORMATION
  Report Type: 
  Country: US (occurrence: US)
  Receive Date: 20121004
  Receipt Date: 20121004
  Transmission Date: 20130627
  Serious: No
  Sender: FDA-Public Use
  Company Number: US-ASTRAZENECA-2012SE73008

PATIENT
  Age: 64 Year
  Sex: Male

DRUGS (11)
  1. SYMBICORT [Suspect]
     Indication: CHRONIC OBSTRUCTIVE PULMONARY DISEASE
     Dosage: 160 MCG, 2 PUFFS DAILY
     Route: 055
     Dates: start: 2011
  2. CARBEDILOL [Concomitant]
     Indication: CARDIOMEGALY
     Route: 048
  3. MAGNESIUM OXIDE [Concomitant]
     Route: 048
  4. ASPIRIN [Concomitant]
     Indication: BLOOD VISCOSITY INCREASED
     Route: 048
     Dates: start: 2011
  5. FUROSEMIDE [Concomitant]
     Indication: FLUID RETENTION
     Route: 048
  6. SIMVASTATIN [Concomitant]
     Indication: BLOOD CHOLESTEROL ABNORMAL
     Route: 048
  7. SODIUM POLYSTYRENCE SULF [Concomitant]
     Indication: BLOOD POTASSIUM INCREASED
     Route: 048
  8. OXYGEN [Concomitant]
     Indication: DYSPNOEA
     Dosage: 2L/MIN, AS REQUIRED
     Route: 055
  9. COMBIVENT [Concomitant]
     Indication: RESPIRATORY DISORDER
     Dosage: AS REQUIRED
     Route: 055
     Dates: start: 2011
  10. HYPERTROPIUM BROMIDE [Concomitant]
     Dosage: 0.5 , 0.3,  DAILY
     Route: 055
  11. WARFARIN [Concomitant]
     Indication: CARDIOVASCULAR EVENT PROPHYLAXIS

REACTIONS (5)
  - Eye disorder [Unknown]
  - Nocturnal dyspnoea [Unknown]
  - Dyspnoea [Unknown]
  - Off label use [Unknown]
  - Intentional drug misuse [Unknown]
